FAERS Safety Report 9389761 (Version 1)
Quarter: 2013Q3

REPORT INFORMATION
  Report Type: Spontaneous
  Country: US (occurrence: US)
  Receive Date: 20130708
  Receipt Date: 20130708
  Transmission Date: 20140515
  Serious: No
  Sender: FDA-Public Use
  Company Number: US-AMGEN-USASP2013045589

PATIENT
  Age: 48 Year
  Sex: 0

DRUGS (1)
  1. ENBREL [Suspect]
     Indication: PRODUCT USED FOR UNKNOWN INDICATION
     Dosage: UNK
     Route: 065

REACTIONS (8)
  - Swelling [Unknown]
  - Weight increased [Unknown]
  - Thirst [Unknown]
  - Sleep disorder [Unknown]
  - Sinus disorder [Unknown]
  - Drug ineffective [Unknown]
  - Pruritus [Unknown]
  - Rash [Unknown]
